FAERS Safety Report 24253731 (Version 2)
Quarter: 2024Q3

REPORT INFORMATION
  Report Type: Spontaneous
  Country: CZ (occurrence: CZ)
  Receive Date: 20240827
  Receipt Date: 20240917
  Transmission Date: 20241016
  Serious: Yes (Life-Threatening, Hospitalization, Other)
  Sender: UCB
  Company Number: None

PATIENT
  Age: 10 Year
  Sex: Male
  Weight: 34 kg

DRUGS (3)
  1. KEPPRA [Suspect]
     Active Substance: LEVETIRACETAM
     Indication: Epilepsy
     Dosage: 1000 MILLIGRAM, 2X/DAY (BID), 1-0-1
     Route: 048
     Dates: start: 202403
  2. KEPPRA [Suspect]
     Active Substance: LEVETIRACETAM
     Dosage: 750 MILLIGRAM, 2X/DAY (BID) ~FROM OCTOBER 2023 DOSED UP TO 2X750MG
     Route: 048
     Dates: start: 202403
  3. POLYETHYLENE GLYCOL 4000 [Concomitant]
     Active Substance: POLYETHYLENE GLYCOL 4000
     Indication: Constipation
     Dosage: AS NEEDED, FOR CONSTIPATION

REACTIONS (2)
  - Epilepsy [Recovered/Resolved]
  - Akathisia [Not Recovered/Not Resolved]

NARRATIVE: CASE EVENT DATE: 20240601
